FAERS Safety Report 15090691 (Version 1)
Quarter: 2018Q3

REPORT INFORMATION
  Report Type: Report from Study
  Country: IT (occurrence: IT)
  Receive Date: 20180629
  Receipt Date: 20180629
  Transmission Date: 20181010
  Serious: Yes (Other)
  Sender: FDA-Public Use
  Company Number: IT-TEVA-2018-IT-917350

PATIENT
  Age: 54 Year
  Sex: Female

DRUGS (2)
  1. ALENDRONATO RATIOPHARM 70 MG COMPRESS E [Suspect]
     Active Substance: ALENDRONATE SODIUM
     Indication: OSTEOPOROSIS
     Route: 048
     Dates: start: 20180303, end: 20180303
  2. COLECALCIFEROL [Concomitant]
     Active Substance: CHOLECALCIFEROL
     Route: 065

REACTIONS (4)
  - Throat irritation [Recovering/Resolving]
  - Hypersensitivity [Recovering/Resolving]
  - Tongue discomfort [Recovering/Resolving]
  - Oral discomfort [Recovering/Resolving]

NARRATIVE: CASE EVENT DATE: 20180303
